FAERS Safety Report 17663543 (Version 2)
Quarter: 2020Q2

REPORT INFORMATION
  Report Type: Report from Study
  Country: US (occurrence: US)
  Receive Date: 20200413
  Receipt Date: 20200424
  Transmission Date: 20200713
  Serious: No
  Sender: FDA-Public Use
  Company Number: US-009507513-2004USA003025

PATIENT
  Sex: Female

DRUGS (1)
  1. ZETIA [Suspect]
     Active Substance: EZETIMIBE
     Dosage: 10 MG ONCE DAILY
     Route: 048
     Dates: end: 20200331

REACTIONS (2)
  - Product dose omission [Unknown]
  - No adverse event [Unknown]

NARRATIVE: CASE EVENT DATE: 20200331
